FAERS Safety Report 15696865 (Version 2)
Quarter: 2018Q4

REPORT INFORMATION
  Report Type: Spontaneous
  Country: US (occurrence: US)
  Receive Date: 20181206
  Receipt Date: 20181213
  Transmission Date: 20190205
  Serious: No
  Sender: FDA-Public Use
  Company Number: US-PFIZER INC-2018495347

PATIENT
  Age: 59 Year
  Sex: Male
  Weight: 92.53 kg

DRUGS (15)
  1. HYDROCODONE/ACETAMINOPHEN [Concomitant]
     Active Substance: ACETAMINOPHEN\HYDROCODONE
     Indication: NEUROPATHY PERIPHERAL
  2. HYDROCODONE/ACETAMINOPHEN [Concomitant]
     Active Substance: ACETAMINOPHEN\HYDROCODONE
     Indication: ARTHRITIS
  3. ONDANSETRAN [Concomitant]
     Active Substance: ONDANSETRON HYDROCHLORIDE
     Indication: NAUSEA
     Dosage: 4 MG, UNK
  4. VITAMIN D [ERGOCALCIFEROL] [Concomitant]
     Indication: VITAMIN D DECREASED
     Dosage: 5000 IU, 1X/DAY
  5. FISH OIL [Concomitant]
     Active Substance: FISH OIL
     Indication: SUPPLEMENTATION THERAPY
     Dosage: 1200 MG, 1X/DAY
  6. GABAPENTIN. [Concomitant]
     Active Substance: GABAPENTIN
     Indication: NEUROPATHY PERIPHERAL
  7. METFORMIN ER [Concomitant]
     Active Substance: METFORMIN HYDROCHLORIDE
     Indication: DIABETES MELLITUS
     Dosage: 500 MG, TABLET, TWO TABLETS BY MOUTH TWICE DAILY WITH MEALS
     Route: 048
  8. HYDROCODONE/ACETAMINOPHEN [Concomitant]
     Active Substance: ACETAMINOPHEN\HYDROCODONE
     Indication: PAIN IN EXTREMITY
     Dosage: 10-325 MG, TABLET, 1 TABLET TWICE DAILY OR AS NEEDED
     Route: 048
  9. SILDENAFIL CITRATE. [Suspect]
     Active Substance: SILDENAFIL CITRATE
     Indication: ERECTILE DYSFUNCTION
     Dosage: 100 MG, ONE TABLET BY MOUTH AS DIRECTED OR AS NEEDED
     Route: 048
     Dates: start: 20181125, end: 20181125
  10. ALLOPURINOL. [Concomitant]
     Active Substance: ALLOPURINOL
     Indication: GOUT
     Dosage: 300 MG, 1X/DAY
     Dates: end: 20181127
  11. GLIPIZIDE XL [Concomitant]
     Active Substance: GLIPIZIDE
     Indication: DIABETES MELLITUS
     Dosage: 10 MG, 1 TABLET BY MOUTH BEFORE MEALS, DAILY
     Route: 048
  12. HYDROCODONE/ACETAMINOPHEN [Concomitant]
     Active Substance: ACETAMINOPHEN\HYDROCODONE
     Indication: GOUT
  13. KETOCONAZOLE. [Concomitant]
     Active Substance: KETOCONAZOLE
     Indication: ANTIFUNGAL TREATMENT
     Dosage: UNK, AS NEEDED
  14. GLIPIZIDE XL [Concomitant]
     Active Substance: GLIPIZIDE
     Dosage: 10 MG, 2X/DAY (TWICE DAILY BEFORE MEALS)
     Route: 048
  15. GABAPENTIN. [Concomitant]
     Active Substance: GABAPENTIN
     Indication: PAIN IN EXTREMITY
     Dosage: 400 MG, 3X/DAY
     Route: 048

REACTIONS (2)
  - Drug ineffective [Unknown]
  - Extra dose administered [Unknown]

NARRATIVE: CASE EVENT DATE: 201811
